FAERS Safety Report 16354089 (Version 7)
Quarter: 2019Q4

REPORT INFORMATION
  Report Type: Report from Study
  Country: CO (occurrence: CO)
  Receive Date: 20190524
  Receipt Date: 20191031
  Transmission Date: 20200122
  Serious: Yes (Hospitalization, Other)
  Sender: FDA-Public Use
  Company Number: PHHY2019CO116581

PATIENT
  Age: 52 Year
  Sex: Male
  Weight: 66 kg

DRUGS (6)
  1. ACETAMINOPHEN. [Concomitant]
     Active Substance: ACETAMINOPHEN
     Indication: BONE PAIN
     Dosage: UNK, PRN
     Route: 065
  2. CALCIUM [Concomitant]
     Active Substance: CALCIUM
     Indication: PRODUCT USED FOR UNKNOWN INDICATION
     Route: 065
  3. TASIGNA [Suspect]
     Active Substance: NILOTINIB
     Indication: CHRONIC MYELOID LEUKAEMIA
     Dosage: 600 MG, QD
     Route: 048
  4. TASIGNA [Suspect]
     Active Substance: NILOTINIB
     Dosage: 600 MG, Q12H
     Route: 048
     Dates: start: 201903
  5. TASIGNA [Suspect]
     Active Substance: NILOTINIB
     Dosage: 600 MG, QD (2 TABLET OF 150MG 2 TABLET IN MORNING AND 2 TABLET OF 150 MG AT NIGHT
     Route: 048
     Dates: start: 20190507
  6. TASIGNA [Suspect]
     Active Substance: NILOTINIB
     Dosage: 300 MG, Q12H
     Route: 048
     Dates: start: 20190227

REACTIONS (19)
  - Haemoglobin decreased [Unknown]
  - Seizure [Unknown]
  - General physical health deterioration [Unknown]
  - Pyrexia [Recovered/Resolved]
  - Vomiting [Unknown]
  - Insomnia [Unknown]
  - Pyrexia [Recovering/Resolving]
  - Malignant neoplasm progression [Unknown]
  - Aggression [Unknown]
  - Weight decreased [Unknown]
  - Malaise [Unknown]
  - Inappropriate schedule of product administration [Unknown]
  - Dehydration [Unknown]
  - Gastritis [Unknown]
  - Headache [Unknown]
  - Diarrhoea [Unknown]
  - Chronic myeloid leukaemia recurrent [Unknown]
  - Depression [Unknown]
  - Cough [Unknown]

NARRATIVE: CASE EVENT DATE: 201812
